FAERS Safety Report 13771092 (Version 1)
Quarter: 2017Q3

REPORT INFORMATION
  Report Type: Spontaneous
  Country: US (occurrence: US)
  Receive Date: 20170720
  Receipt Date: 20170720
  Transmission Date: 20171127
  Serious: Yes (Hospitalization, Other)
  Sender: FDA-Public Use
  Company Number: US-TEVA-729436USA

PATIENT
  Sex: Female
  Weight: 78 kg

DRUGS (3)
  1. LISINOPRIL. [Suspect]
     Active Substance: LISINOPRIL
     Indication: HYPERTENSION
     Dates: start: 201512
  2. LISINOPRIL. [Suspect]
     Active Substance: LISINOPRIL
     Dosage: ONE TABLETS TWICE DAILY
  3. LISINOPRIL. [Suspect]
     Active Substance: LISINOPRIL
     Dosage: TWO TABLETS TWICE DAILY

REACTIONS (7)
  - Visual impairment [Not Recovered/Not Resolved]
  - Vision blurred [Not Recovered/Not Resolved]
  - Hypotension [Unknown]
  - Dizziness [Unknown]
  - Gait disturbance [Unknown]
  - Hypertension [Recovered/Resolved]
  - Asthenia [Unknown]

NARRATIVE: CASE EVENT DATE: 2016
